FAERS Safety Report 16253479 (Version 1)
Quarter: 2019Q2

REPORT INFORMATION
  Report Type: Other
  Country: DE (occurrence: DE)
  Receive Date: 20190430
  Receipt Date: 20190430
  Transmission Date: 20190711
  Serious: Yes (Other)
  Sender: FDA-Public Use
  Company Number: DE-DEXPHARM-20190283

PATIENT
  Age: 60 Year
  Sex: Male

DRUGS (20)
  1. VALPORATE [Suspect]
     Active Substance: VALPROATE SODIUM
     Indication: POST-ANOXIC MYOCLONUS
  2. CLONAZEPAM. [Suspect]
     Active Substance: CLONAZEPAM
     Dosage: UP TO 1.5 MG/D
  3. PIRACETAM [Suspect]
     Active Substance: PIRACETAM
  4. PERAMPANEL [Suspect]
     Active Substance: PERAMPANEL
     Dosage: 2MG PER DAY OR OR 4MG DAY ON ALTERNATE DAYS
  5. TOPIRAMATE. [Suspect]
     Active Substance: TOPIRAMATE
     Indication: SEIZURE
  6. PERAMPANEL [Suspect]
     Active Substance: PERAMPANEL
     Dosage: 2MG PER DAY
  7. LEVETIRACETAM. [Suspect]
     Active Substance: LEVETIRACETAM
     Indication: SEIZURE
     Dosage: MAXIMUM DAILY DOSE OF 1500 MG
  8. PERAMPANEL [Suspect]
     Active Substance: PERAMPANEL
     Dosage: MAZIMUM DAILY DOSE OF 8 MG
  9. DRONABINOL. [Concomitant]
     Active Substance: DRONABINOL
  10. LAMOTRIGINE. [Suspect]
     Active Substance: LAMOTRIGINE
     Indication: SEIZURE
  11. CLONAZEPAM. [Suspect]
     Active Substance: CLONAZEPAM
     Dosage: 2 MG/DAY
  12. CANNABIDIOL [Suspect]
     Active Substance: CANNABIDIOL
  13. LEVETIRACETAM. [Suspect]
     Active Substance: LEVETIRACETAM
     Dosage: 500 MG/DAY
  14. GABAPENTIN. [Suspect]
     Active Substance: GABAPENTIN
  15. PREGABALIN. [Suspect]
     Active Substance: PREGABALIN
     Indication: SEIZURE
  16. PIRACETAM [Concomitant]
     Active Substance: PIRACETAM
  17. DRONABINOL. [Suspect]
     Active Substance: DRONABINOL
  18. ZONISAMIDE. [Suspect]
     Active Substance: ZONISAMIDE
     Indication: SEIZURE
  19. ESLICARBAZEPINE [Suspect]
     Active Substance: ESLICARBAZEPINE
     Indication: SEIZURE
  20. BRIVARACETAM [Suspect]
     Active Substance: BRIVARACETAM
     Indication: SEIZURE
     Dosage: MAXIMUM DAILY DOSE OF 150 MG

REACTIONS (14)
  - Parkinsonism [Recovered/Resolved]
  - Aggression [Recovered/Resolved]
  - Nausea [Recovered/Resolved]
  - Rash [Recovered/Resolved]
  - Vomiting [Recovered/Resolved]
  - Facial paresis [Recovered/Resolved]
  - Aphasia [Recovered/Resolved]
  - Dysarthria [Recovered/Resolved]
  - Fatigue [Recovered/Resolved]
  - Monoparesis [Recovered/Resolved]
  - Drug ineffective [Recovered/Resolved]
  - Cerebellar ataxia [Recovered/Resolved]
  - Dystonia [Recovered/Resolved]
  - Salivary hypersecretion [Recovered/Resolved]
